FAERS Safety Report 4373711-4 (Version None)
Quarter: 2004Q1

REPORT INFORMATION
  Report Type: 
  Country: None (occurrence: None)
  Receive Date: 20040305
  Receipt Date: 20040105
  Transmission Date: 20041129
  Serious: Yes (Other)
  Sender: FDA-Public Use
  Company Number: 2004UW00100

PATIENT
  Age: 79 Year
  Sex: Female

DRUGS (6)
  1. CRESTOR [Suspect]
     Dosage: 10 MG DAILY PO
     Route: 048
  2. ATENOLOL [Concomitant]
  3. SYNTHROID [Concomitant]
  4. ALLEGRA [Concomitant]
  5. VITAMIN E [Concomitant]
  6. ASPIRIN [Concomitant]

REACTIONS (3)
  - CONSTIPATION [None]
  - GLOSSODYNIA [None]
  - MYALGIA [None]
